APPROVED DRUG PRODUCT: TERBUTALINE SULFATE
Active Ingredient: TERBUTALINE SULFATE
Strength: 5MG
Dosage Form/Route: TABLET;ORAL
Application: A075877 | Product #002 | TE Code: AB
Applicant: IMPAX LABORATORIES INC
Approved: Jun 26, 2001 | RLD: No | RS: No | Type: RX